FAERS Safety Report 11150195 (Version 1)
Quarter: 2015Q2

REPORT INFORMATION
  Report Type: Spontaneous
  Country: IT (occurrence: IT)
  Receive Date: 20150529
  Receipt Date: 20150529
  Transmission Date: 20150821
  Serious: Yes (Hospitalization)
  Sender: FDA-Public Use
  Company Number: PHHY2015IT059921

PATIENT
  Age: 82 Year
  Sex: Female

DRUGS (4)
  1. ADENURIC [Concomitant]
     Active Substance: FEBUXOSTAT
     Indication: HYPERURICAEMIA
     Dosage: 80 MG, UNK
     Route: 065
  2. CITALOPRAM [Concomitant]
     Active Substance: CITALOPRAM HYDROBROMIDE
     Indication: DEPRESSION
     Route: 065
  3. CLARITHROMYCIN. [Suspect]
     Active Substance: CLARITHROMYCIN
     Indication: INFLUENZA
     Dosage: 250 MG, ONCE/SINGLE
     Route: 048
     Dates: start: 20140926
  4. MEDROL [Suspect]
     Active Substance: METHYLPREDNISOLONE
     Indication: INFLUENZA
     Dosage: 4 MG, ONCE/SINGLE
     Route: 048
     Dates: start: 20140926, end: 20140926

REACTIONS (2)
  - Dyspnoea [Unknown]
  - Pruritus generalised [Unknown]

NARRATIVE: CASE EVENT DATE: 20140926
